FAERS Safety Report 11236282 (Version 2)
Quarter: 2015Q3

REPORT INFORMATION
  Report Type: Spontaneous
  Country: IT (occurrence: IT)
  Receive Date: 20150702
  Receipt Date: 20150709
  Transmission Date: 20151125
  Serious: Yes (Hospitalization, Other)
  Sender: FDA-Public Use
  Company Number: IT-GILEAD-2015-0160005

PATIENT
  Age: 64 Year
  Sex: Male

DRUGS (4)
  1. PREFOLIC [Concomitant]
     Active Substance: LEUCOVORIN CALCIUM
     Indication: VITAMIN SUPPLEMENTATION
     Dosage: 50 MG, UNK
     Route: 030
     Dates: start: 20150504, end: 20150616
  2. LUVION                             /00252501/ [Concomitant]
     Active Substance: CANRENONE
     Indication: OLIGURIA
     Dosage: 100 MG, UNK
     Route: 048
     Dates: start: 20150101, end: 20150617
  3. RIBAVIRIN. [Suspect]
     Active Substance: RIBAVIRIN
     Indication: HEPATIC CIRRHOSIS
     Dosage: 800 MG, QD
     Route: 048
  4. SOVALDI [Suspect]
     Active Substance: SOFOSBUVIR
     Indication: CHRONIC HEPATITIS
     Dosage: 400 MG, QD
     Route: 048

REACTIONS (1)
  - Pancreatitis [Recovering/Resolving]

NARRATIVE: CASE EVENT DATE: 20150617
